FAERS Safety Report 10039629 (Version 1)
Quarter: 2014Q1

REPORT INFORMATION
  Report Type: Spontaneous
  Country: IL (occurrence: IL)
  Receive Date: 20140326
  Receipt Date: 20140326
  Transmission Date: 20141002
  Serious: Yes (Other)
  Sender: FDA-Public Use
  Company Number: IL-BAXTER-2014BAX013730

PATIENT
  Age: 63 Year
  Sex: Male

DRUGS (11)
  1. STERILE WATER FOR INJECTION USP [Suspect]
     Indication: PARENTERAL NUTRITION
     Route: 042
     Dates: start: 20140311
  2. DEXTROSE 50% USP [Suspect]
     Indication: PARENTERAL NUTRITION
     Route: 042
     Dates: start: 20140311
  3. CERNEVIT [Suspect]
     Indication: PARENTERAL NUTRITION
     Route: 042
     Dates: start: 20140311
  4. SYNTHAMIN [Suspect]
     Indication: PARENTERAL NUTRITION
     Route: 042
     Dates: start: 20140311
  5. CALCIUM GLUCONATE [Suspect]
     Indication: PARENTERAL NUTRITION
     Route: 042
     Dates: start: 20140311
  6. POTASSIUM CHLORIDE [Suspect]
     Indication: PARENTERAL NUTRITION
     Dosage: MEQ/ML
     Route: 042
     Dates: start: 20140311
  7. MAGNESIUM SULFATE [Suspect]
     Indication: PARENTERAL NUTRITION
     Route: 042
     Dates: start: 20140311
  8. SODIUM CHLORIDE [Suspect]
     Indication: PARENTERAL NUTRITION
     Route: 042
     Dates: start: 20140311
  9. SODIUM GLYCEROPHOSPHATE [Suspect]
     Indication: PARENTERAL NUTRITION
     Route: 042
     Dates: start: 20140311
  10. ADDAMEL N [Suspect]
     Indication: PARENTERAL NUTRITION
     Route: 042
     Dates: start: 20140311
  11. LIPOFUNDIN [Suspect]
     Indication: PARENTERAL NUTRITION
     Route: 042
     Dates: start: 20140311

REACTIONS (3)
  - Epistaxis [Unknown]
  - Vomiting [Unknown]
  - Pyrexia [Unknown]
